FAERS Safety Report 8078565-0 (Version None)
Quarter: 2012Q1

REPORT INFORMATION
  Report Type: 
  Country: None (occurrence: None)
  Receive Date: 20120127
  Receipt Date: 20110102
  Transmission Date: 20120608
  Serious: No
  Sender: FDA-Public Use
  Company Number: US-ABBOTT-11P-163-0694794-00

PATIENT
  Age: 75 Year
  Sex: Female

DRUGS (3)
  1. AVAPRO [Concomitant]
     Indication: HYPERTENSION
     Dosage: 300 MG DAILY
  2. HUMIRA [Suspect]
     Indication: CROHN'S DISEASE
     Dates: start: 20101109
  3. COLAZAL [Concomitant]
     Indication: CROHN'S DISEASE

REACTIONS (1)
  - INJECTION SITE PAIN [None]
